FAERS Safety Report 25956897 (Version 2)
Quarter: 2025Q4

REPORT INFORMATION
  Report Type: Report from Study
  Country: US (occurrence: US)
  Receive Date: 20251024
  Receipt Date: 20251125
  Transmission Date: 20260118
  Serious: Yes (Life-Threatening, Other)
  Sender: EMD SERONO INC
  Company Number: US-Merck Healthcare KGaA-2025052982

PATIENT
  Sex: Female
  Weight: 109.77 kg

DRUGS (2)
  1. MAVENCLAD [Suspect]
     Active Substance: CLADRIBINE
     Indication: Multiple sclerosis
     Dosage: YEAR ONE MONTH ONE THERAPY
  2. MAVENCLAD [Suspect]
     Active Substance: CLADRIBINE
     Dosage: YEAR ONE MONTH TWO THERAPY

REACTIONS (7)
  - Blood potassium decreased [Recovered/Resolved]
  - Intervertebral disc protrusion [Unknown]
  - Fall [Unknown]
  - Feeling abnormal [Unknown]
  - Dizziness [Unknown]
  - Injury [Unknown]
  - Spinal column injury [Unknown]
